FAERS Safety Report 4364896-4 (Version None)
Quarter: 2004Q2

REPORT INFORMATION
  Report Type: 
  Country: None (occurrence: None)
  Receive Date: 20040526
  Receipt Date: 20040514
  Transmission Date: 20050107
  Serious: Yes (Hospitalization)
  Sender: FDA-Public Use
  Company Number: AU-BRISTOL-MYERS SQUIBB COMPANY-12586863

PATIENT
  Age: 12 Year
  Sex: Female

DRUGS (1)
  1. DICLOCIL [Suspect]

REACTIONS (1)
  - HEPATIC FAILURE [None]
